FAERS Safety Report 4493088-3 (Version None)
Quarter: 2004Q4

REPORT INFORMATION
  Report Type: 
  Country: None (occurrence: None)
  Receive Date: 20041101
  Receipt Date: 20041014
  Transmission Date: 20050328
  Serious: Yes (Other)
  Sender: FDA-Public Use
  Company Number: 239321

PATIENT
  Age: 51 Year
  Sex: Male
  Weight: 77 kg

DRUGS (5)
  1. NOVORAPID CHU (INSULIN ASPART) SOLUTION FOR INJECTION, 100U/ML [Suspect]
     Indication: INSULIN-REQUIRING TYPE II DIABETES MELLITUS
     Dosage: 19 IU, SUBCUTANEOUS
     Route: 058
     Dates: start: 20040423, end: 20040804
  2. MICARDIS [Suspect]
     Indication: HYPERTENSION
     Dosage: 40 MG, QD, PER ORAL
     Route: 048
     Dates: start: 20040123, end: 20040329
  3. NOVOLIN R CHU (INSULIN HUMAN) [Concomitant]
  4. NOVOLIN N CHU (INSULIN HUMAN) [Concomitant]
  5. NORVASC [Concomitant]

REACTIONS (3)
  - ALANINE AMINOTRANSFERASE INCREASED [None]
  - ASPARTATE AMINOTRANSFERASE INCREASED [None]
  - HEPATIC FUNCTION ABNORMAL [None]
